FAERS Safety Report 10426380 (Version 1)
Quarter: 2014Q3

REPORT INFORMATION
  Report Type: Spontaneous
  Country: US (occurrence: None)
  Receive Date: 20140725
  Receipt Date: 20140725
  Transmission Date: 20150326
  Serious: No
  Sender: FDA-Public Use
  Company Number: AP356-00644-SPO-US

PATIENT
  Age: 66 Year
  Sex: Female
  Weight: 145 kg

DRUGS (5)
  1. FENOTEROL(FENOTEROL) [Concomitant]
  2. BELVIQ [Suspect]
     Active Substance: LORCASERIN HYDROCHLORIDE
     Indication: WEIGHT DECREASED
     Route: 048
     Dates: start: 20140401, end: 201404
  3. ALBUTEROL(SALBUTAMOL SULFATE) [Concomitant]
  4. HERBAL PREPARATION(HERBAL PREPARATION) [Concomitant]
  5. COMBIVENT(COMBIVENT) [Concomitant]

REACTIONS (2)
  - Intentional underdose [None]
  - Dizziness postural [None]

NARRATIVE: CASE EVENT DATE: 20140423
